FAERS Safety Report 10179613 (Version 1)
Quarter: 2014Q2

REPORT INFORMATION
  Report Type: Spontaneous
  Country: AR (occurrence: AR)
  Receive Date: 20140519
  Receipt Date: 20140519
  Transmission Date: 20141212
  Serious: Yes (Death, Hospitalization)
  Sender: FDA-Public Use
  Company Number: AR-GLAXOSMITHKLINE-A1073522A

PATIENT
  Age: 44 Year
  Sex: Female

DRUGS (4)
  1. BENLYSTA [Suspect]
     Indication: SYSTEMIC LUPUS ERYTHEMATOSUS
     Route: 065
     Dates: end: 201312
  2. UNKNOWN [Concomitant]
     Dates: end: 201312
  3. INFLUENZA VACCINE [Concomitant]
  4. PNEUMOCOCCAL VACCINE [Concomitant]

REACTIONS (3)
  - Meningitis streptococcal [Fatal]
  - Pneumothorax [Fatal]
  - Mechanical ventilation [Unknown]
